FAERS Safety Report 12971356 (Version 3)
Quarter: 2018Q4

REPORT INFORMATION
  Report Type: Spontaneous
  Country: US (occurrence: US)
  Receive Date: 20161123
  Receipt Date: 20181105
  Transmission Date: 20190204
  Serious: No
  Sender: FDA-Public Use
  Company Number: US-JAZZ-2016-US-019899

PATIENT
  Sex: Female

DRUGS (47)
  1. VALSARTAN HCTZ [Concomitant]
     Active Substance: HYDROCHLOROTHIAZIDE\VALSARTAN
  2. TIZANIDINE HCL [Concomitant]
     Active Substance: TIZANIDINE HYDROCHLORIDE
  3. LYRICA [Concomitant]
     Active Substance: PREGABALIN
  4. AMLODIPINE BESYLATE. [Concomitant]
     Active Substance: AMLODIPINE BESYLATE
  5. CYMBALTA [Concomitant]
     Active Substance: DULOXETINE HYDROCHLORIDE
  6. DITROPAN XL [Concomitant]
     Active Substance: OXYBUTYNIN CHLORIDE
  7. OXYBUTYNIN. [Concomitant]
     Active Substance: OXYBUTYNIN CHLORIDE
  8. FLUCONAZOLE. [Concomitant]
     Active Substance: FLUCONAZOLE
  9. CIPRO [Concomitant]
     Active Substance: CIPROFLOXACIN HYDROCHLORIDE
  10. KEFLEX [Concomitant]
     Active Substance: CEPHALEXIN
  11. VALTREX [Concomitant]
     Active Substance: VALACYCLOVIR HYDROCHLORIDE
  12. ULTRAM ER [Concomitant]
     Active Substance: TRAMADOL HYDROCHLORIDE
  13. XYREM [Suspect]
     Active Substance: SODIUM OXYBATE
     Indication: CATAPLEXY
     Dosage: 3 G, BID
     Route: 048
     Dates: start: 201401, end: 201402
  14. XYREM [Suspect]
     Active Substance: SODIUM OXYBATE
     Dosage: 4.5 G, BID
     Route: 048
     Dates: start: 201402
  15. DICLOFENAC SODIUM AND MISOPROSTOL [Concomitant]
     Active Substance: DICLOFENAC SODIUM\MISOPROSTOL
  16. BENZONATATE. [Concomitant]
     Active Substance: BENZONATATE
  17. ZORVOLEX [Concomitant]
     Active Substance: DICLOFENAC
  18. SINGULAIR [Concomitant]
     Active Substance: MONTELUKAST SODIUM
  19. GABAPENTIN. [Concomitant]
     Active Substance: GABAPENTIN
  20. NUVIGIL [Concomitant]
     Active Substance: ARMODAFINIL
  21. FERROUS SULFATE. [Concomitant]
     Active Substance: FERROUS SULFATE
  22. BETAMETHASONE DIHYDROGEN PHOSPHATE. [Concomitant]
     Active Substance: BETAMETHASONE DIHYDROGEN PHOSPHATE
  23. POTASSIUM CL [Concomitant]
     Active Substance: POTASSIUM CHLORIDE
  24. TOPIRAMATE. [Concomitant]
     Active Substance: TOPIRAMATE
  25. VOLTAREN XR                          /00372301/ [Concomitant]
  26. PROPRANOLOL ER [Concomitant]
     Active Substance: PROPRANOLOL HYDROCHLORIDE
  27. SIMVASTATIN. [Concomitant]
     Active Substance: SIMVASTATIN
  28. ADDERALL [Concomitant]
     Active Substance: AMPHETAMINE ASPARTATE\AMPHETAMINE SULFATE\DEXTROAMPHETAMINE SACCHARATE\DEXTROAMPHETAMINE SULFATE
  29. CYANOCOBALAMIN. [Concomitant]
     Active Substance: CYANOCOBALAMIN
  30. MEDROXYPROGESTERONE [Concomitant]
     Active Substance: MEDROXYPROGESTERONE
  31. NORCO [Concomitant]
     Active Substance: ACETAMINOPHEN\HYDROCODONE BITARTRATE
  32. XYREM [Suspect]
     Active Substance: SODIUM OXYBATE
     Indication: NARCOLEPSY
     Dosage: 2.25 G, BID
     Route: 048
     Dates: start: 201401, end: 201401
  33. TOLTERODINE TARTRA ER [Concomitant]
  34. MELOXICAM. [Concomitant]
     Active Substance: MELOXICAM
  35. VITAMIN D                          /00107901/ [Concomitant]
     Active Substance: ERGOCALCIFEROL
  36. LUNESTA [Concomitant]
     Active Substance: ESZOPICLONE
  37. TYLENOL WITH CODEINE [Concomitant]
     Active Substance: ACETAMINOPHEN\CODEINE PHOSPHATE
  38. OMEPRAZOLE DR [Concomitant]
     Active Substance: OMEPRAZOLE
  39. FLUTICASONE PROPIONATE. [Concomitant]
     Active Substance: FLUTICASONE PROPIONATE
  40. PREVIDENT [Concomitant]
     Active Substance: SODIUM FLUORIDE
  41. PREMPRO [Concomitant]
     Active Substance: ESTROGENS, CONJUGATED\MEDROXYPROGESTERONE ACETATE
  42. OXYBUTYNIN CHLORIDE ER [Concomitant]
     Active Substance: OXYBUTYNIN CHLORIDE
  43. METRONIDAZOLE. [Concomitant]
     Active Substance: METRONIDAZOLE
  44. TRIAMCINOLONE [Concomitant]
     Active Substance: TRIAMCINOLONE
  45. DIVALPROEX SODIUM DR [Concomitant]
     Active Substance: DIVALPROEX SODIUM
  46. TRAMADOL ER [Concomitant]
     Active Substance: TRAMADOL HYDROCHLORIDE
  47. MAXALT [Concomitant]
     Active Substance: RIZATRIPTAN BENZOATE

REACTIONS (2)
  - Migraine [Recovering/Resolving]
  - Hypertension [Recovered/Resolved]

NARRATIVE: CASE EVENT DATE: 2016
